FAERS Safety Report 21179560 (Version 1)
Quarter: 2022Q3

REPORT INFORMATION
  Report Type: Spontaneous
  Country: US (occurrence: None)
  Receive Date: 20220805
  Receipt Date: 20220805
  Transmission Date: 20221027
  Serious: No
  Sender: FDA-Public Use
  Company Number: 2022A251009

PATIENT
  Sex: Female
  Weight: 120.2 kg

DRUGS (1)
  1. BYDUREON BCISE [Suspect]
     Active Substance: EXENATIDE
     Indication: Glucose tolerance impaired
     Route: 058

REACTIONS (4)
  - Incorrect dose administered by device [Unknown]
  - Injury associated with device [Unknown]
  - Device use issue [Unknown]
  - Device leakage [Unknown]
